FAERS Safety Report 6058296-9 (Version None)
Quarter: 2009Q1

REPORT INFORMATION
  Report Type: 
  Country: None (occurrence: None)
  Receive Date: 20090121
  Receipt Date: 20090109
  Transmission Date: 20090719
  Serious: Yes (Other)
  Sender: FDA-Public Use
  Company Number: AEDEU200900007

PATIENT
  Sex: Female

DRUGS (1)
  1. PROLASTIN [Suspect]
     Indication: IDIOPATHIC THROMBOCYTOPENIC PURPURA
     Dosage: 1000 MG; IV
     Route: 042

REACTIONS (2)
  - CHEST DISCOMFORT [None]
  - CHEST PAIN [None]
